FAERS Safety Report 21332280 (Version 1)
Quarter: 2022Q3

REPORT INFORMATION
  Report Type: Spontaneous
  Country: US (occurrence: US)
  Receive Date: 20220914
  Receipt Date: 20220914
  Transmission Date: 20221027
  Serious: Yes (Other)
  Sender: FDA-Public Use
  Company Number: None

PATIENT
  Age: 73 Year
  Sex: Male

DRUGS (2)
  1. TOBRAMYCIN [Suspect]
     Active Substance: TOBRAMYCIN
     Indication: Pseudomonas infection
     Dosage: 300 MG EVERY 12 HOURS
     Route: 055
  2. TACROLIMUS [Suspect]
     Active Substance: TACROLIMUS
     Indication: Infection
     Route: 065

REACTIONS (1)
  - Acute kidney injury [Unknown]
